FAERS Safety Report 9495299 (Version 1)
Quarter: 2013Q3

REPORT INFORMATION
  Report Type: Spontaneous
  Country: JP (occurrence: None)
  Receive Date: 20130828
  Receipt Date: 20130828
  Transmission Date: 20140515
  Serious: Yes (Other)
  Sender: FDA-Public Use
  Company Number: EUS-2013-00494

PATIENT
  Age: 40 Year
  Sex: Female

DRUGS (5)
  1. ASPARAGINASE (UNSPECIFIED) (ASPARAGINASE) [Suspect]
     Indication: ACUTE LYMPHOCYTIC LEUKAEMIA
     Dosage: 3000 KU/M^2/DAY
  2. CYCLOPHOSPHAMIDE (CYCLOPHOSPHAMIDE) (CYCLOPHOSPHAMIDE) [Concomitant]
  3. DOXORUBICIN (DOXORUBICIN) (DOXORUBICIN) [Concomitant]
  4. VINCRISTINE (VINCRISTINE) (VINRISTINE) [Concomitant]
  5. PREDNISOLONE (PREDNISOLONE) (PREDNISOLONE) [Concomitant]

REACTIONS (1)
  - Acute hepatic failure [None]
